FAERS Safety Report 10653853 (Version 2)
Quarter: 2014Q4

REPORT INFORMATION
  Report Type: Spontaneous
  Country: US (occurrence: None)
  Receive Date: 20141212
  Receipt Date: 20141230
  Transmission Date: 20150529
  Serious: Yes (Death)
  Sender: FDA-Public Use
  Company Number: INS201412-000309

PATIENT
  Age: 57 Year
  Weight: 66.86 kg

DRUGS (4)
  1. OXYCODONE [Concomitant]
     Active Substance: OXYCODONE
  2. VALIUM [Concomitant]
     Active Substance: DIAZEPAM
  3. SUBSYS [Suspect]
     Active Substance: FENTANYL
     Indication: CANCER PAIN
     Dosage: (400 MCG,120 (UNSPECIFIED))
     Route: 060
     Dates: start: 20141103
  4. OXYCODONE/ACETAMINOPHEN (OXYCODONE, ACETAMINOPHEN) (OXYCODONE, ACETAMINOPHEN) [Concomitant]

REACTIONS (1)
  - Colon cancer metastatic [None]

NARRATIVE: CASE EVENT DATE: 20141114
